FAERS Safety Report 6335014-8 (Version None)
Quarter: 2009Q3

REPORT INFORMATION
  Report Type: 
  Country: None (occurrence: None)
  Receive Date: 20090831
  Receipt Date: 20090819
  Transmission Date: 20100115
  Serious: Yes (Other)
  Sender: FDA-Public Use
  Company Number: JP-NOVOPROD-275203

PATIENT
  Age: 75 Year
  Sex: Male
  Weight: 70 kg

DRUGS (7)
  1. LEVEMIR [Suspect]
     Indication: TYPE 2 DIABETES MELLITUS
     Dosage: 2 IU, QD
     Route: 058
     Dates: start: 20080228, end: 20080313
  2. LEVEMIR [Suspect]
     Dosage: 10 IU, UNK
     Route: 058
     Dates: start: 20080313, end: 20080423
  3. GLUCOBAY [Concomitant]
     Indication: TYPE 2 DIABETES MELLITUS
     Dosage: 300 MG, QD
     Route: 048
     Dates: start: 20030101
  4. EUGLUCON [Concomitant]
     Indication: TYPE 2 DIABETES MELLITUS
     Dosage: 5 MG, QD
     Route: 048
     Dates: start: 20030101, end: 20080224
  5. MELBIN                             /00082702/ [Concomitant]
     Indication: TYPE 2 DIABETES MELLITUS
     Dosage: 500 MG, QD
     Route: 048
     Dates: start: 20070201
  6. AMARYL [Concomitant]
     Indication: TYPE 2 DIABETES MELLITUS
     Dosage: 3 MG, QD
     Route: 048
     Dates: start: 20080224
  7. AMAZOLON [Concomitant]
     Indication: PARKINSONISM
     Dosage: 50 MG, QD
     Route: 048
     Dates: start: 20071001

REACTIONS (5)
  - ANAPHYLACTIC SHOCK [None]
  - ANTI-INSULIN ANTIBODY POSITIVE [None]
  - INJECTION SITE ERYTHEMA [None]
  - INJECTION SITE SWELLING [None]
  - LOSS OF CONSCIOUSNESS [None]
